FAERS Safety Report 8088892-9 (Version None)
Quarter: 2012Q1

REPORT INFORMATION
  Report Type: 
  Country: None (occurrence: None)
  Receive Date: 20120128
  Receipt Date: 20110413
  Transmission Date: 20120608
  Serious: No
  Sender: FDA-Public Use
  Company Number: US-ABBOTT-11P-163-0718792-00

PATIENT
  Age: 49 Year
  Sex: Female

DRUGS (5)
  1. WELLBUTRIN [Concomitant]
     Indication: DEPRESSION
  2. WELLBUTRIN [Concomitant]
     Indication: MENOPAUSE
  3. MULTI-VITAMINS [Concomitant]
     Indication: PRODUCT USED FOR UNKNOWN INDICATION
     Dosage: DAILY
  4. HUMIRA [Suspect]
     Indication: PSORIASIS
     Dates: start: 20100901
  5. WELLBUTRIN [Concomitant]
     Indication: SMOKING CESSATION THERAPY

REACTIONS (1)
  - INJECTION SITE PAIN [None]
